FAERS Safety Report 22198708 (Version 2)
Quarter: 2023Q2

REPORT INFORMATION
  Report Type: Spontaneous
  Country: US (occurrence: None)
  Receive Date: 20230411
  Receipt Date: 20230414
  Transmission Date: 20230722
  Serious: Yes (Other)
  Sender: FDA-Public Use
  Company Number: 2023A080247

PATIENT
  Age: 26720 Day
  Sex: Female

DRUGS (1)
  1. BREZTRI [Suspect]
     Active Substance: BUDESONIDE\FORMOTEROL\GLYCOPYRROLATE
     Indication: Chronic obstructive pulmonary disease
     Dosage: 160/9/4.8 MCG, TWO PUFFS, TWO TIMES A DAY
     Route: 055

REACTIONS (10)
  - Dyspnoea [Recovered/Resolved]
  - Stress [Unknown]
  - Feeling abnormal [Unknown]
  - Agitation [Unknown]
  - Visual impairment [Unknown]
  - Extra dose administered [Recovered/Resolved]
  - Device malfunction [Unknown]
  - Incorrect dose administered by device [Unknown]
  - Drug dose omission by device [Unknown]
  - Device use issue [Unknown]

NARRATIVE: CASE EVENT DATE: 20230406
